FAERS Safety Report 17548963 (Version 1)
Quarter: 2020Q1

REPORT INFORMATION
  Report Type: Spontaneous
  Country: CN (occurrence: CN)
  Receive Date: 20200317
  Receipt Date: 20200317
  Transmission Date: 20200409
  Serious: Yes (Other)
  Sender: FDA-Public Use
  Company Number: CN-ROCHE-2564956

PATIENT
  Age: 76 Year
  Sex: Female

DRUGS (10)
  1. RITUXIMAB. [Suspect]
     Active Substance: RITUXIMAB
     Indication: BREAST CANCER
     Dosage: ON DAY 0
     Route: 042
     Dates: start: 201807, end: 201902
  2. PERTUZUMAB. [Suspect]
     Active Substance: PERTUZUMAB
     Indication: BREAST CANCER
     Dosage: INITIAL 840 MG, FOLLOW BY 420 MG
     Route: 042
     Dates: start: 201912
  3. LOBAPLATIN [Concomitant]
     Active Substance: LOBAPLATIN
     Indication: BREAST CANCER
     Dosage: ON DAY 1
     Route: 042
     Dates: start: 201807, end: 201902
  4. SODIUM IBANDRONATE [Concomitant]
     Active Substance: IBANDRONATE SODIUM
     Indication: BREAST CANCER
     Dosage: ON DAY 2
     Route: 041
     Dates: start: 201912
  5. ZOLEDRONIC ACID [Concomitant]
     Active Substance: ZOLEDRONIC ACID
     Dosage: ON DAY 2
     Route: 042
     Dates: start: 201903
  6. RITUXIMAB. [Suspect]
     Active Substance: RITUXIMAB
     Route: 042
     Dates: start: 20200209
  7. PYROTINIB [Concomitant]
     Active Substance: PYROTINIB
     Indication: BREAST CANCER
     Route: 048
     Dates: start: 201903
  8. ZOLEDRONIC ACID [Concomitant]
     Active Substance: ZOLEDRONIC ACID
     Indication: BREAST CANCER
     Dosage: ON DAY 2
     Route: 042
     Dates: start: 201807, end: 201902
  9. CAPECITABINE. [Concomitant]
     Active Substance: CAPECITABINE
     Indication: BREAST CANCER
     Dosage: FROM DAY 1 TO DAY 14, ONE CYCLE PER 21 DAYS
     Route: 048
     Dates: start: 201807, end: 201809
  10. CAPECITABINE. [Concomitant]
     Active Substance: CAPECITABINE
     Dosage: FROM DAY 1 TO DAY 14, ONE CYCLE PER 42 DAYS
     Route: 048
     Dates: end: 20190201

REACTIONS (5)
  - Asthma [Recovering/Resolving]
  - Anaemia [Recovering/Resolving]
  - Asthenia [Recovering/Resolving]
  - Hypersensitivity [Unknown]
  - Bone marrow failure [Unknown]

NARRATIVE: CASE EVENT DATE: 201807
